FAERS Safety Report 8515003-5 (Version None)
Quarter: 2012Q3

REPORT INFORMATION
  Report Type: 
  Country: None (occurrence: None)
  Receive Date: 20120705
  Receipt Date: 20120625
  Transmission Date: 20120928
  Serious: Yes (Other)
  Sender: FDA-Public Use
  Company Number: 2010001491

PATIENT
  Age: 54 Year
  Sex: Female

DRUGS (2)
  1. GEMCITABINE [Concomitant]
  2. TARCEVA [Suspect]
     Indication: NON-SMALL CELL LUNG CANCER
     Dosage: 150 MG, UID/QD, ORAL
     Route: 048
     Dates: start: 20090919, end: 20100405

REACTIONS (2)
  - RHABDOMYOLYSIS [None]
  - PRODUCT QUALITY ISSUE [None]
